FAERS Safety Report 23311795 (Version 1)
Quarter: 2023Q4

REPORT INFORMATION
  Report Type: Spontaneous
  Country: US (occurrence: None)
  Receive Date: 20231218
  Receipt Date: 20231218
  Transmission Date: 20240110
  Serious: Yes (Hospitalization)
  Sender: FDA-Public Use
  Company Number: None

PATIENT
  Age: 87 Year
  Sex: Male

DRUGS (3)
  1. DOFETILIDE [Suspect]
     Active Substance: DOFETILIDE
     Indication: Atrial fibrillation
     Dosage: FREQUENCY : TWICE A DAY;?
     Route: 048
     Dates: start: 202203
  2. TYVASO DPI MAIN KIT PWD [Concomitant]
  3. SILDENAFIL CITRATE [Concomitant]

REACTIONS (1)
  - Cervical vertebral fracture [None]

NARRATIVE: CASE EVENT DATE: 20231216
